FAERS Safety Report 9023703 (Version 1)
Quarter: 2013Q1

REPORT INFORMATION
  Report Type: Spontaneous
  Country: ES (occurrence: ES)
  Receive Date: 20130121
  Receipt Date: 20130121
  Transmission Date: 20140127
  Serious: Yes (Other)
  Sender: FDA-Public Use
  Company Number: ES-ELI_LILLY_AND_COMPANY-ES201301006007

PATIENT
  Age: 69 None
  Sex: Male
  Weight: 84 kg

DRUGS (11)
  1. ALIMTA [Suspect]
     Indication: LUNG NEOPLASM MALIGNANT
     Dosage: UNK, OTHER
     Route: 042
     Dates: start: 20121119
  2. MOTILIUM [Concomitant]
     Indication: PROPHYLAXIS OF NAUSEA AND VOMITING
     Dosage: 10 MG, QID
     Dates: start: 20121119
  3. FORTECORTIN [Concomitant]
     Dosage: 4 MG, QD
     Route: 048
     Dates: start: 20121119
  4. ONDANSETRON [Concomitant]
     Indication: PROPHYLAXIS OF NAUSEA AND VOMITING
     Dosage: 4 MG, QID
     Route: 048
     Dates: start: 20121119
  5. ATORVASTATINA [Concomitant]
     Indication: DYSLIPIDAEMIA
     Dosage: 20 MG, QD
     Route: 048
  6. LORMETAZEPAM [Concomitant]
     Indication: ANXIETY
     Dosage: 2 MG, QD
     Route: 048
  7. ADIRO [Concomitant]
     Indication: ANTIPLATELET THERAPY
     Dosage: 100 MG, QD
     Route: 048
  8. OMEPRAZOL [Concomitant]
     Dosage: 20 MG, QD
  9. HALOPERIDOL [Concomitant]
     Indication: ANXIETY
     Dosage: 0.5 MG, PRN
     Route: 048
  10. PAROXETINA [Concomitant]
     Indication: DEPRESSION
     Dosage: 20 MG, QD
     Route: 048
  11. INSULINA ACTRAPID [Concomitant]
     Indication: DIABETES MELLITUS
     Dosage: 10 U, PRN
     Dates: start: 20121119

REACTIONS (1)
  - Hyperglycaemia [Not Recovered/Not Resolved]
